FAERS Safety Report 4478630-0 (Version None)
Quarter: 2004Q4

REPORT INFORMATION
  Report Type: 
  Country: None (occurrence: None)
  Receive Date: 20041019
  Receipt Date: 20041008
  Transmission Date: 20050328
  Serious: Yes (Death, Other)
  Sender: FDA-Public Use
  Company Number: FR-MERCK-0410FRA00056

PATIENT
  Age: 58 Year
  Sex: Male

DRUGS (8)
  1. CANCIDAS [Suspect]
     Indication: ENDOCARDITIS
     Route: 042
     Dates: start: 20020529, end: 20020529
  2. CANCIDAS [Suspect]
     Route: 042
     Dates: start: 20020530, end: 20020601
  3. CANCIDAS [Suspect]
     Route: 042
     Dates: start: 20020601, end: 20020610
  4. VORICONAZOLE [Suspect]
     Indication: ENDOCARDITIS
     Route: 042
     Dates: start: 20020529, end: 20020529
  5. VORICONAZOLE [Suspect]
     Route: 042
     Dates: start: 20020530, end: 20020601
  6. VORICONAZOLE [Suspect]
     Route: 042
     Dates: start: 20020601, end: 20020610
  7. AMPHOTERICIN B AND CHOLESTEROL AND DISTEAROYLPHOSPHATIDYLGLYCEROL AND [Concomitant]
     Indication: ENDOCARDITIS
     Route: 042
     Dates: start: 20020516, end: 20020524
  8. AMPHOTERICIN B AND CHOLESTEROL AND DISTEAROYLPHOSPHATIDYLGLYCEROL AND [Concomitant]
     Route: 042
     Dates: start: 20020525, end: 20020528

REACTIONS (3)
  - CHOLESTASIS [None]
  - CYTOLYTIC HEPATITIS [None]
  - MULTI-ORGAN FAILURE [None]
